FAERS Safety Report 14718534 (Version 1)
Quarter: 2018Q2

REPORT INFORMATION
  Report Type: Spontaneous
  Country: CA (occurrence: CA)
  Receive Date: 20180404
  Receipt Date: 20180404
  Transmission Date: 20180711
  Serious: Yes (Disabling)
  Sender: FDA-Public Use
  Company Number: CA-TEVA-2018-CA-875795

PATIENT
  Age: 58 Year
  Sex: Female
  Weight: 59.93 kg

DRUGS (1)
  1. FENTANYL. [Suspect]
     Active Substance: FENTANYL
     Indication: FIBROMYALGIA
     Route: 062

REACTIONS (2)
  - Dermatitis allergic [Not Recovered/Not Resolved]
  - Application site vesicles [Not Recovered/Not Resolved]
